FAERS Safety Report 16202506 (Version 1)
Quarter: 2019Q2

REPORT INFORMATION
  Report Type: Spontaneous
  Country: BE (occurrence: BE)
  Receive Date: 20190416
  Receipt Date: 20190416
  Transmission Date: 20190711
  Serious: Yes (Other)
  Sender: FDA-Public Use
  Company Number: BE-TAKEDA-2019TUS022164

PATIENT
  Sex: Female

DRUGS (1)
  1. ENTYVIO [Suspect]
     Active Substance: VEDOLIZUMAB
     Indication: CROHN^S DISEASE
     Dosage: UNK
     Route: 065
     Dates: start: 20170303

REACTIONS (4)
  - Therapeutic reaction time decreased [Unknown]
  - Intestinal resection [Unknown]
  - Intestinal ulcer [Unknown]
  - Intestinal anastomosis [Unknown]

NARRATIVE: CASE EVENT DATE: 20190315
